FAERS Safety Report 19566795 (Version 2)
Quarter: 2021Q3

REPORT INFORMATION
  Report Type: Report from Study
  Country: EG (occurrence: EG)
  Receive Date: 20210714
  Receipt Date: 20210908
  Transmission Date: 20211014
  Serious: Yes (Other)
  Sender: FDA-Public Use
  Company Number: EG-SEATTLE GENETICS-2021SGN00228

PATIENT
  Sex: Female

DRUGS (1)
  1. BRENTUXIMAB VEDOTIN [Suspect]
     Active Substance: BRENTUXIMAB VEDOTIN
     Indication: HODGKIN^S DISEASE REFRACTORY
     Dosage: UNK, Q3WEEKS
     Route: 042
     Dates: start: 20201229

REACTIONS (7)
  - Decreased appetite [Unknown]
  - Gastric ulcer [Unknown]
  - Tachycardia [Unknown]
  - Anal abscess [Unknown]
  - White blood cell count decreased [Unknown]
  - Vomiting [Unknown]
  - Bone pain [Unknown]
